FAERS Safety Report 10499907 (Version 1)
Quarter: 2014Q4

REPORT INFORMATION
  Report Type: Spontaneous
  Country: US (occurrence: US)
  Receive Date: 20141006
  Receipt Date: 20141006
  Transmission Date: 20150528
  Serious: No
  Sender: FDA-Public Use
  Company Number: US-AMGEN INC.-USASP2014058397

PATIENT
  Sex: Female
  Weight: 54.88 kg

DRUGS (1)
  1. PROLIA [Suspect]
     Active Substance: DENOSUMAB
     Indication: OSTEOPOROSIS POSTMENOPAUSAL
     Route: 065

REACTIONS (7)
  - Chronic obstructive pulmonary disease [Unknown]
  - Hypertension [Unknown]
  - Hyperlipidaemia [Unknown]
  - Mobility decreased [Unknown]
  - Asthenia [Unknown]
  - General physical health deterioration [Unknown]
  - Back pain [Unknown]
